FAERS Safety Report 5675052-1 (Version None)
Quarter: 2008Q1

REPORT INFORMATION
  Report Type: 
  Country: None (occurrence: None)
  Receive Date: 20080320
  Receipt Date: 20080312
  Transmission Date: 20080703
  Serious: Yes (Other)
  Sender: FDA-Public Use
  Company Number: US-PFIZER INC-2008023085

PATIENT
  Sex: Male
  Weight: 124.7 kg

DRUGS (4)
  1. LIPITOR [Suspect]
     Indication: BLOOD CHOLESTEROL INCREASED
  2. CODEINE SUL TAB [Concomitant]
  3. WARFARIN SODIUM [Concomitant]
  4. ANTICOAGULANTS [Concomitant]

REACTIONS (6)
  - ABASIA [None]
  - ACTIVITIES OF DAILY LIVING IMPAIRED [None]
  - ARTHRALGIA [None]
  - ARTHRITIS [None]
  - MYALGIA [None]
  - PAIN IN EXTREMITY [None]
